FAERS Safety Report 4507645-9 (Version None)
Quarter: 2004Q4

REPORT INFORMATION
  Report Type: 
  Country: None (occurrence: None)
  Receive Date: 20041118
  Receipt Date: 20041024
  Transmission Date: 20050328
  Serious: Yes (Other)
  Sender: FDA-Public Use
  Company Number: B0349329A

PATIENT
  Sex: 0

DRUGS (4)
  1. ALKERAN [Suspect]
     Indication: MULTIPLE MYELOMA
  2. CYCLOPHOSPHAMIDE [Concomitant]
  3. GRANULOCYTE COL. STIM. FACT [Concomitant]
  4. INTERFERON [Concomitant]

REACTIONS (1)
  - CYSTITIS HAEMORRHAGIC [None]
